FAERS Safety Report 22345928 (Version 1)
Quarter: 2023Q2

REPORT INFORMATION
  Report Type: Spontaneous
  Country: US (occurrence: US)
  Receive Date: 20230519
  Receipt Date: 20230519
  Transmission Date: 20230721
  Serious: Yes (Hospitalization)
  Sender: FDA-Public Use
  Company Number: US-REGENERON PHARMACEUTICALS, INC.-2023-066578

PATIENT
  Sex: Female

DRUGS (1)
  1. LIBTAYO [Suspect]
     Active Substance: CEMIPLIMAB-RWLC
     Indication: Squamous cell carcinoma of skin
     Dosage: UNK
     Dates: start: 202304

REACTIONS (10)
  - Sensory loss [Unknown]
  - Chills [Unknown]
  - Oral pain [Unknown]
  - Headache [Unknown]
  - Fatigue [Unknown]
  - Rash [Not Recovered/Not Resolved]
  - Pyrexia [Unknown]
  - Pruritus [Unknown]
  - Decreased appetite [Unknown]
  - Diarrhoea [Unknown]
